FAERS Safety Report 8847580 (Version 3)
Quarter: 2013Q2

REPORT INFORMATION
  Report Type: Other
  Country: GB (occurrence: GB)
  Receive Date: 20121018
  Receipt Date: 20130404
  Transmission Date: 20140414
  Serious: Yes (Other)
  Sender: FDA-Public Use
  Company Number: GB-WATSON-2012-17484

PATIENT
  Age: 70 Year
  Sex: Male

DRUGS (8)
  1. CLOPIDOGREL (UNKNOWN) [Suspect]
     Indication: PRODUCT USED FOR UNKNOWN INDICATION
     Dosage: 75 MG, QAM
     Route: 065
     Dates: start: 201110
  2. DOXAZOSIN MESYLATE (UNKNOWN) [Suspect]
     Indication: PRODUCT USED FOR UNKNOWN INDICATION
     Dosage: 4 MG, QPM
     Route: 065
     Dates: start: 200903
  3. LANSOPRAZOLE (UNKNOWN) [Suspect]
     Indication: PRODUCT USED FOR UNKNOWN INDICATION
     Dosage: 15 MG, UNK
     Dates: start: 20120903
  4. ASPIRIN [Concomitant]
     Indication: PRODUCT USED FOR UNKNOWN INDICATION
     Dosage: 75 MG, UNK, STOPPED OCT 2011 WHEN CLOPIDOGREL STARTED, RESTARTED 3 MAY 2012
     Route: 065
     Dates: start: 200901, end: 201110
  5. ASPIRIN [Concomitant]
     Dosage: 75 MG, UNK
     Dates: start: 20120503
  6. ATORVASTATIN [Concomitant]
     Indication: PRODUCT USED FOR UNKNOWN INDICATION
     Dosage: 20 MG, DAILY
     Dates: start: 2004
  7. ENALAPRIL [Concomitant]
     Indication: PRODUCT USED FOR UNKNOWN INDICATION
     Dosage: 40 MG, DAILY, TEMPORARLY STOPPED AFTER BYPASS OPERATION, GRADUALLY REINTRODUCED SINCE
     Dates: start: 2006
  8. AMLODIPINE [Concomitant]
     Indication: PRODUCT USED FOR UNKNOWN INDICATION
     Dosage: 10 MG, DAILY, TEMPORARILY STOPPED AFTER BYPASS OPERATION, GRADUALLY REINTRODUCED SINCE
     Dates: start: 200902

REACTIONS (6)
  - Drug interaction [Unknown]
  - Drug ineffective [Recovering/Resolving]
  - Bleeding time prolonged [Unknown]
  - Epistaxis [Unknown]
  - Contusion [Not Recovered/Not Resolved]
  - Nocturia [Unknown]
